FAERS Safety Report 18170549 (Version 1)
Quarter: 2020Q3

REPORT INFORMATION
  Report Type: Spontaneous
  Country: US (occurrence: US)
  Receive Date: 20200819
  Receipt Date: 20200819
  Transmission Date: 20201103
  Serious: No
  Sender: FDA-Public Use
  Company Number: US-JNJFOC-20200809883

PATIENT
  Age: 6 Decade
  Sex: Female
  Weight: 112.04 kg

DRUGS (2)
  1. REMICADE [Suspect]
     Active Substance: INFLIXIMAB
     Indication: PSORIATIC ARTHROPATHY
     Route: 042
     Dates: start: 201906, end: 202001
  2. REMICADE [Suspect]
     Active Substance: INFLIXIMAB
     Route: 042

REACTIONS (5)
  - Urticaria [Unknown]
  - Off label use [Unknown]
  - Pain [Unknown]
  - Therapeutic product effect decreased [Unknown]
  - Inappropriate schedule of product administration [Unknown]
